FAERS Safety Report 5061350-1 (Version None)
Quarter: 2006Q3

REPORT INFORMATION
  Report Type: 
  Country: None (occurrence: None)
  Receive Date: 20060719
  Receipt Date: 20060719
  Transmission Date: 20061208
  Serious: Yes (Hospitalization, Other)
  Sender: FDA-Public Use
  Company Number: None

PATIENT
  Sex: Male
  Weight: 100.9 kg

DRUGS (2)
  1. SULFAMETHOXAZOLE + TRIMETHOPRIM [Suspect]
     Indication: STAPHYLOCOCCAL INFECTION
     Dosage: 1 TAB BID PO
     Route: 048
     Dates: start: 20060404
  2. SULFAMETHOXAZOLE + TRIMETHOPRIM [Suspect]
     Indication: STAPHYLOCOCCAL INFECTION
     Dosage: 1 TAB BID PO
     Route: 048
     Dates: start: 20060405

REACTIONS (4)
  - BLOOD CREATININE INCREASED [None]
  - HYPOVOLAEMIA [None]
  - RENAL FAILURE ACUTE [None]
  - RESPIRATORY DISORDER [None]
